FAERS Safety Report 7803846-2 (Version None)
Quarter: 2011Q4

REPORT INFORMATION
  Report Type: 
  Country: None (occurrence: None)
  Receive Date: 20111010
  Receipt Date: 20110930
  Transmission Date: 20120403
  Serious: Yes (Other)
  Sender: FDA-Public Use
  Company Number: CA-JNJFOC-20110903218

PATIENT
  Sex: Female
  Weight: 68.04 kg

DRUGS (3)
  1. SIMPONI [Suspect]
     Indication: RHEUMATOID ARTHRITIS
     Route: 058
     Dates: start: 20110816, end: 20110913
  2. INH [Concomitant]
     Route: 048
     Dates: start: 20110201
  3. VITAMIN B6 [Concomitant]
     Route: 048
     Dates: start: 20110201

REACTIONS (8)
  - WEIGHT INCREASED [None]
  - MALAISE [None]
  - CONFUSIONAL STATE [None]
  - MUSCLE SPASMS [None]
  - HALLUCINATION [None]
  - DYSPNOEA EXERTIONAL [None]
  - NIGHT SWEATS [None]
  - NAUSEA [None]
